FAERS Safety Report 8407230-2 (Version None)
Quarter: 2012Q2

REPORT INFORMATION
  Report Type: 
  Country: None (occurrence: None)
  Receive Date: 20120604
  Receipt Date: 20120521
  Transmission Date: 20120825
  Serious: Yes (Other)
  Sender: FDA-Public Use
  Company Number: US-ROCHE-1024490

PATIENT
  Sex: Male
  Weight: 68.1 kg

DRUGS (5)
  1. ACCUTANE [Suspect]
     Indication: ACNE
     Route: 065
     Dates: start: 19800101
  2. ACCUTANE [Suspect]
     Route: 065
     Dates: start: 19950101, end: 19960101
  3. ACCUTANE [Suspect]
     Route: 065
     Dates: start: 19911201, end: 19920501
  4. ACCUTANE [Suspect]
     Route: 065
     Dates: start: 19960101, end: 19970101
  5. ASPIRIN [Concomitant]

REACTIONS (6)
  - COLITIS ULCERATIVE [None]
  - INTESTINAL HAEMORRHAGE [None]
  - SINUSITIS [None]
  - ANXIETY [None]
  - CROHN'S DISEASE [None]
  - INFLAMMATORY BOWEL DISEASE [None]
